FAERS Safety Report 6868463-X (Version None)
Quarter: 2010Q3

REPORT INFORMATION
  Report Type: 
  Country: None (occurrence: None)
  Receive Date: 20100722
  Receipt Date: 20080527
  Transmission Date: 20110219
  Serious: No
  Sender: FDA-Public Use
  Company Number: US-PFIZER INC-2008046530

PATIENT
  Sex: Female
  Weight: 58.51 kg

DRUGS (5)
  1. CHANTIX [Suspect]
     Indication: SMOKING CESSATION THERAPY
     Dates: start: 20080519, end: 20080526
  2. ACETYLSALICYLIC ACID [Concomitant]
  3. LOVASTATIN [Concomitant]
  4. ESTRADIOL [Concomitant]
  5. ESTRACE [Concomitant]

REACTIONS (1)
  - VOMITING [None]
